FAERS Safety Report 14766540 (Version 2)
Quarter: 2018Q2

REPORT INFORMATION
  Report Type: Report from Study
  Country: BR (occurrence: BR)
  Receive Date: 20180416
  Receipt Date: 20180423
  Transmission Date: 20180711
  Serious: Yes (Other)
  Sender: FDA-Public Use
  Company Number: PHHY2018BR065114

PATIENT
  Sex: Male
  Weight: 65 kg

DRUGS (2)
  1. FOLIC ACID. [Concomitant]
     Active Substance: FOLIC ACID
     Indication: THALASSAEMIA
     Dosage: 5 MG, UNK (USING IT FOR MORE THAN 5 YEARS)
     Route: 065
  2. EXJADE [Suspect]
     Active Substance: DEFERASIROX
     Indication: IRON OVERLOAD
     Dosage: 1875 MG (3 TABLETS OF500 MG, 1 TABLET OF 250 MG AND 1 TABLET OF 125 MG
     Route: 048
     Dates: start: 2013

REACTIONS (3)
  - Nephrolithiasis [Recovering/Resolving]
  - Pyrexia [Recovering/Resolving]
  - Food poisoning [Recovering/Resolving]
